FAERS Safety Report 6398526-7 (Version None)
Quarter: 2009Q4

REPORT INFORMATION
  Report Type: 
  Country: None (occurrence: None)
  Receive Date: 20091007
  Receipt Date: 20091001
  Transmission Date: 20100525
  Serious: Yes (Other)
  Sender: FDA-Public Use
  Company Number: 2009SP028604

PATIENT
  Sex: Female

DRUGS (1)
  1. NOXAFIL [Suspect]
     Indication: ASPERGILLOSIS

REACTIONS (2)
  - EYE DISORDER [None]
  - VISUAL ACUITY REDUCED [None]
